FAERS Safety Report 13973232 (Version 1)
Quarter: 2017Q3

REPORT INFORMATION
  Report Type: Spontaneous
  Country: GB (occurrence: GB)
  Receive Date: 20170914
  Receipt Date: 20170914
  Transmission Date: 20171128
  Serious: Yes (Life-Threatening)
  Sender: FDA-Public Use
  Company Number: GB-MYLANLABS-2017M1056270

PATIENT
  Age: 61 Year
  Sex: Female

DRUGS (9)
  1. QUETIAPINE. [Suspect]
     Active Substance: QUETIAPINE
     Indication: PRODUCT USED FOR UNKNOWN INDICATION
     Dosage: NOCTE
     Route: 048
     Dates: start: 20170720
  2. FUROSEMIDE. [Concomitant]
     Active Substance: FUROSEMIDE
  3. BISOPROLOL [Concomitant]
     Active Substance: BISOPROLOL
  4. WARFARIN [Suspect]
     Active Substance: WARFARIN
     Indication: CARDIAC FAILURE
     Dosage: LONG TERM
     Route: 048
  5. ZEMTARD [Concomitant]
     Route: 048
  6. PARACETAMOL [Concomitant]
     Active Substance: ACETAMINOPHEN
  7. LETROZOLE. [Concomitant]
     Active Substance: LETROZOLE
     Route: 048
  8. DIGOXIN. [Concomitant]
     Active Substance: DIGOXIN
  9. SODIUM VALPROATE [Concomitant]
     Active Substance: VALPROATE SODIUM
     Dosage: NOCTE
     Route: 048

REACTIONS (1)
  - International normalised ratio increased [Recovered/Resolved]

NARRATIVE: CASE EVENT DATE: 20170724
